FAERS Safety Report 12137673 (Version 2)
Quarter: 2016Q2

REPORT INFORMATION
  Report Type: Report from Study
  Country: ES (occurrence: ES)
  Receive Date: 20160302
  Receipt Date: 20160412
  Transmission Date: 20160815
  Serious: Yes (Hospitalization)
  Sender: FDA-Public Use
  Company Number: ES-PFIZER INC-2016112821

PATIENT
  Age: 62 Year
  Sex: Female
  Weight: 108 kg

DRUGS (15)
  1. DOXORUBICIN HCL [Suspect]
     Active Substance: DOXORUBICIN HYDROCHLORIDE
     Indication: SOFT TISSUE SARCOMA
     Dosage: UNK, CYCLIC
     Route: 042
  2. DEXAMETASONA /00016001/ [Concomitant]
     Dosage: UNK
     Dates: start: 20150918
  3. DEXKETOPROFENO [Concomitant]
     Dosage: UNK
     Dates: start: 2014
  4. ACETAMINOFEN [Concomitant]
     Active Substance: ACETAMINOPHEN
     Dosage: UNK
     Dates: start: 2014
  5. DEXRAZOXANE. [Suspect]
     Active Substance: DEXRAZOXANE
     Indication: SOFT TISSUE SARCOMA
     Dosage: UNK, CYCLIC
     Route: 042
  6. CITALOPRAM 1 A PHARMA [Concomitant]
     Dosage: UNK
     Dates: start: 2005
  7. ENOXAPARINE SODIQUE [Concomitant]
     Active Substance: ENOXAPARIN SODIUM
     Dosage: UNK
     Dates: start: 20071003
  8. XANAX [Concomitant]
     Active Substance: ALPRAZOLAM
     Dosage: UNK
     Dates: start: 2014
  9. FENTANYL. [Concomitant]
     Active Substance: FENTANYL
     Dosage: UNK
     Dates: start: 2014
  10. OMEPRAZOL [Concomitant]
     Active Substance: OMEPRAZOLE
     Dosage: UNK
     Dates: start: 2014
  11. SIMVASTATIN. [Concomitant]
     Active Substance: SIMVASTATIN
     Dosage: UNK
     Dates: start: 2005
  12. BLINDED THERAPY [Suspect]
     Active Substance: INVESTIGATIONAL PRODUCT
     Indication: SOFT TISSUE SARCOMA
     Dosage: UNK, CYCLIC
     Route: 042
     Dates: start: 20151112, end: 20160112
  13. ENALAPRIL [Concomitant]
     Active Substance: ENALAPRIL
     Dosage: UNK
     Dates: start: 2005
  14. LANTUS [Concomitant]
     Active Substance: INSULIN GLARGINE
     Dosage: UNK
     Dates: start: 1953
  15. METAMIZOL /06276702/ [Concomitant]
     Active Substance: METAMIZOLE
     Dosage: UNK
     Dates: start: 201412

REACTIONS (1)
  - Respiratory tract infection [Recovered/Resolved]

NARRATIVE: CASE EVENT DATE: 20160116
